FAERS Safety Report 16983503 (Version 1)
Quarter: 2019Q4

REPORT INFORMATION
  Report Type: Spontaneous
  Country: US (occurrence: US)
  Receive Date: 20191030
  Receipt Date: 20191030
  Transmission Date: 20200122
  Serious: Yes (Other)
  Sender: FDA-Public Use
  Company Number: None

PATIENT
  Age: 25 Year
  Sex: Male

DRUGS (1)
  1. BUPRENORPHINE-NALOXONE TABS [Suspect]
     Active Substance: BUPRENORPHINE\NALOXONE
     Indication: DRUG DEPENDENCE
     Dates: start: 20191018

REACTIONS (3)
  - Product taste abnormal [None]
  - Drug level below therapeutic [None]
  - Product solubility abnormal [None]

NARRATIVE: CASE EVENT DATE: 20191018
